FAERS Safety Report 14800945 (Version 3)
Quarter: 2023Q1

REPORT INFORMATION
  Report Type: Other
  Country: GR (occurrence: None)
  Receive Date: 20180424
  Receipt Date: 20230207
  Transmission Date: 20230418
  Serious: Yes (Other)
  Sender: FDA-Public Use
  Company Number: GR-MDC-2018-00026_14/MAR/2018

PATIENT
  Age: 36 Year
  Sex: Female

DRUGS (2)
  1. CAPECITABINE [Suspect]
     Active Substance: CAPECITABINE
     Indication: Colon cancer
     Route: 048
  2. OXALIPLATIN [Suspect]
     Active Substance: OXALIPLATIN
     Indication: Colon cancer
     Route: 065

REACTIONS (8)
  - Haematemesis [Unknown]
  - Non-cirrhotic portal hypertension [Unknown]
  - Varices oesophageal [Unknown]
  - Splenomegaly [Unknown]
  - Hepatic fibrosis [Unknown]
  - Oesophageal varices haemorrhage [Unknown]
  - Hepatotoxicity [Unknown]
  - Liver disorder [Unknown]
